FAERS Safety Report 6483247-2 (Version None)
Quarter: 2009Q4

REPORT INFORMATION
  Report Type: 
  Country: None (occurrence: None)
  Receive Date: 20091209
  Receipt Date: 20091203
  Transmission Date: 20100525
  Serious: Yes (Hospitalization)
  Sender: FDA-Public Use
  Company Number: DK-SANOFI-AVENTIS-2009SA002298

PATIENT
  Age: 24 Year
  Sex: Female

DRUGS (1)
  1. KLEXANE [Suspect]
     Indication: THROMBOSIS PROPHYLAXIS
     Route: 058
     Dates: start: 20091011, end: 20091013

REACTIONS (2)
  - DRUG EXPOSURE DURING PREGNANCY [None]
  - FOETAL GROWTH RETARDATION [None]
